FAERS Safety Report 5587784-4 (Version None)
Quarter: 2007Q4

REPORT INFORMATION
  Report Type: 
  Country: None (occurrence: None)
  Receive Date: 20071205
  Receipt Date: 20070531
  Transmission Date: 20080405
  Serious: Yes (Other)
  Sender: FDA-Public Use
  Company Number: E3810-00960-SPO-US

PATIENT
  Age: 58 Year
  Sex: Female
  Weight: 74 kg

DRUGS (5)
  1. ACIPHEX [Suspect]
     Indication: PEPTIC ULCER
     Dosage: 20 MG, ORAL
     Route: 048
     Dates: start: 20060914
  2. SYNTHROID [Concomitant]
  3. ALLEGRA [Concomitant]
  4. MULTI-VITAMINS [Concomitant]
  5. IRON (IRON) [Concomitant]

REACTIONS (1)
  - IRON DEFICIENCY ANAEMIA [None]
